FAERS Safety Report 5179586-8 (Version None)
Quarter: 2006Q4

REPORT INFORMATION
  Report Type: 
  Country: None (occurrence: None)
  Receive Date: 20061219
  Receipt Date: 20061214
  Transmission Date: 20070319
  Serious: Yes (Death, Hospitalization)
  Sender: FDA-Public Use
  Company Number: FR-ELI_LILLY_AND_COMPANY-FR200612002599

PATIENT
  Age: 80 Year
  Sex: Male

DRUGS (5)
  1. ALIMTA [Suspect]
     Indication: NON-SMALL CELL LUNG CANCER RECURRENT
     Route: 042
     Dates: start: 20061207
  2. FOLIC ACID [Concomitant]
     Route: 048
     Dates: start: 20061201
  3. VITAMIN B-12 [Concomitant]
     Route: 030
     Dates: start: 20061201
  4. CORTICOSTEROID NOS [Concomitant]
     Indication: PROPHYLAXIS
     Route: 065
     Dates: start: 20061201
  5. PERINDOPRIL ERBUMINE [Concomitant]
     Indication: HYPERTENSION
     Route: 048
     Dates: end: 20061212

REACTIONS (3)
  - DEATH [None]
  - FATIGUE [None]
  - HYPOTENSION [None]
